FAERS Safety Report 23852142 (Version 1)
Quarter: 2024Q2

REPORT INFORMATION
  Report Type: Spontaneous
  Country: US (occurrence: US)
  Receive Date: 20240514
  Receipt Date: 20240514
  Transmission Date: 20240715
  Serious: Yes (Life-Threatening, Hospitalization, Other)
  Sender: FDA-Public Use
  Company Number: US-STERISCIENCE B.V.-2024-ST-000616

PATIENT
  Sex: Male

DRUGS (5)
  1. MIDAZOLAM [Suspect]
     Active Substance: MIDAZOLAM
     Indication: Tetanus
     Dosage: UNK
     Route: 042
  2. LORAZEPAM [Suspect]
     Active Substance: LORAZEPAM
     Indication: Tetanus
     Dosage: UNK
     Route: 065
  3. TETANUS IMMUNE GLOBULIN (HUMAN) [Suspect]
     Active Substance: HUMAN CLOSTRIDIUM TETANI TOXOID IMMUNE GLOBULIN
     Indication: Tetanus
     Dosage: UNK
     Route: 065
  4. TETANUS TOXOIDS [Suspect]
     Active Substance: TETANUS TOXOIDS
     Indication: Tetanus
     Dosage: UNK
     Route: 065
  5. PROPOFOL [Suspect]
     Active Substance: PROPOFOL
     Indication: Tetanus
     Dosage: UNK
     Route: 042

REACTIONS (1)
  - Drug ineffective for unapproved indication [Unknown]
